FAERS Safety Report 14379405 (Version 1)
Quarter: 2018Q1

REPORT INFORMATION
  Report Type: Spontaneous
  Country: ES (occurrence: ES)
  Receive Date: 20180112
  Receipt Date: 20180112
  Transmission Date: 20180509
  Serious: Yes (Hospitalization, Other)
  Sender: FDA-Public Use
  Company Number: ES-ZYDUS-018773

PATIENT
  Age: 43 Year
  Sex: Male

DRUGS (3)
  1. OMEPRAZOLE. [Suspect]
     Active Substance: OMEPRAZOLE
     Indication: PRODUCT USED FOR UNKNOWN INDICATION
     Route: 065
  2. MIRTAZAPINE. [Concomitant]
     Active Substance: MIRTAZAPINE
     Indication: PRODUCT USED FOR UNKNOWN INDICATION
     Route: 065
  3. LORAZEPAM. [Concomitant]
     Active Substance: LORAZEPAM
     Indication: PRODUCT USED FOR UNKNOWN INDICATION
     Route: 065

REACTIONS (17)
  - Hypocalcaemia [Recovered/Resolved]
  - Confusional state [Recovering/Resolving]
  - IIIrd nerve disorder [Unknown]
  - Delirium [Recovering/Resolving]
  - Dysarthria [Recovered/Resolved]
  - Asthenia [Recovering/Resolving]
  - Nausea [Recovered/Resolved]
  - Tremor [Recovering/Resolving]
  - Hypomagnesaemia [Recovered/Resolved]
  - Rhabdomyolysis [Recovering/Resolving]
  - Headache [Recovered/Resolved]
  - Cerebellar ataxia [Recovered/Resolved]
  - Mental disorder [Recovering/Resolving]
  - Visual impairment [Unknown]
  - Vasogenic cerebral oedema [Recovered/Resolved]
  - Hyperreflexia [Recovered/Resolved]
  - Cognitive disorder [Unknown]
